FAERS Safety Report 5761988-X (Version None)
Quarter: 2008Q2

REPORT INFORMATION
  Report Type: 
  Country: None (occurrence: None)
  Receive Date: 20080603
  Receipt Date: 20080520
  Transmission Date: 20081010
  Serious: Yes (Hospitalization)
  Sender: FDA-Public Use
  Company Number: 2008SS000020

PATIENT

DRUGS (3)
  1. BOTULINUM TOXIN TYPE B (BOTULINUM TOXIN TYPE B) (5000 U/ML) [Suspect]
     Indication: OFF LABEL USE
     Dosage: 2500 UNITS; X1; IGLR
  2. BOTULINUM TOXIN TYPE B (BOTULINUM TOXIN TYPE B) (5000 U/ML) [Suspect]
     Indication: SALIVARY HYPERSECRETION
     Dosage: 2500 UNITS; X1; IGLR
  3. AMITRIPTYLINE HCL [Concomitant]

REACTIONS (10)
  - BACK PAIN [None]
  - EYE IRRITATION [None]
  - FACIAL PARESIS [None]
  - MASTICATION DISORDER [None]
  - OFF LABEL USE [None]
  - PARAESTHESIA [None]
  - PNEUMONIA ASPIRATION [None]
  - RESPIRATORY TRACT INFECTION [None]
  - SALIVA ALTERED [None]
  - SALIVARY HYPERSECRETION [None]
